FAERS Safety Report 4672559-0 (Version None)
Quarter: 2005Q2

REPORT INFORMATION
  Report Type: 
  Country: None (occurrence: None)
  Receive Date: 20050524
  Receipt Date: 20050426
  Transmission Date: 20051028
  Serious: Yes (Other)
  Sender: FDA-Public Use
  Company Number: US-GLAXOSMITHKLINE-A0555857A

PATIENT
  Age: 7 Year
  Sex: Female

DRUGS (2)
  1. LAMICTAL [Suspect]
     Indication: EPILEPSY
     Route: 048
     Dates: start: 20040206, end: 20050427
  2. CEFZIL [Suspect]
     Route: 048

REACTIONS (3)
  - INFECTIOUS MONONUCLEOSIS [None]
  - RASH [None]
  - URTICARIA [None]
